FAERS Safety Report 7319338-3 (Version None)
Quarter: 2011Q1

REPORT INFORMATION
  Report Type: 
  Country: None (occurrence: None)
  Receive Date: 20110228
  Receipt Date: 20100202
  Transmission Date: 20110831
  Serious: No
  Sender: FDA-Public Use
  Company Number: A0843094A

PATIENT
  Sex: Female

DRUGS (2)
  1. LAMICTAL [Suspect]
     Indication: BIPOLAR DISORDER
     Route: 048
  2. LAMOTRIGINE [Suspect]
     Indication: BIPOLAR DISORDER
     Route: 065
     Dates: start: 20080101

REACTIONS (4)
  - DRUG INEFFECTIVE [None]
  - INJURY [None]
  - EMOTIONAL DISTRESS [None]
  - ADVERSE EVENT [None]
